FAERS Safety Report 13670520 (Version 1)
Quarter: 2017Q2

REPORT INFORMATION
  Report Type: Spontaneous
  Country: HR (occurrence: HR)
  Receive Date: 20170620
  Receipt Date: 20170620
  Transmission Date: 20170830
  Serious: Yes (Hospitalization, Other)
  Sender: FDA-Public Use
  Company Number: PHHY2017HR077384

PATIENT
  Sex: Female

DRUGS (2)
  1. TEGRETOL [Suspect]
     Active Substance: CARBAMAZEPINE
     Indication: PRODUCT USED FOR UNKNOWN INDICATION
     Dosage: 8 G, 20 TABLETS
     Route: 048
     Dates: start: 20160319
  2. PRAXITEN [Suspect]
     Active Substance: OXAZEPAM
     Indication: PRODUCT USED FOR UNKNOWN INDICATION
     Dosage: 225 MG, 15 TABLETS
     Route: 048
     Dates: start: 20160319

REACTIONS (7)
  - Conduction disorder [Unknown]
  - Seizure [Unknown]
  - Somnolence [Unknown]
  - Sopor [Unknown]
  - Intentional overdose [Unknown]
  - Suicide attempt [Unknown]
  - Coma [Unknown]

NARRATIVE: CASE EVENT DATE: 20160319
